FAERS Safety Report 24133035 (Version 2)
Quarter: 2024Q3

REPORT INFORMATION
  Report Type: Spontaneous
  Country: MX (occurrence: MX)
  Receive Date: 20240724
  Receipt Date: 20240910
  Transmission Date: 20241017
  Serious: Yes (Hospitalization, Disabling, Other)
  Sender: ROCHE
  Company Number: MX-ROCHE-10000034081

PATIENT
  Age: 56 Year
  Sex: Female
  Weight: 50 kg

DRUGS (10)
  1. PERJETA [Suspect]
     Active Substance: PERTUZUMAB
     Indication: Breast cancer
     Dosage: DOSE WAS NOT REPORTED
     Route: 042
     Dates: start: 20230724, end: 202309
  2. HERCEPTIN [Suspect]
     Active Substance: TRASTUZUMAB
     Indication: Breast cancer
     Dosage: DOSE WAS NOT REPORTED
     Route: 042
     Dates: start: 20230724, end: 202407
  3. LETROZOLE [Concomitant]
     Active Substance: LETROZOLE
     Dosage: DOSE WAS NOT REPORTED
  4. VALPROATE SODIUM [Concomitant]
     Active Substance: VALPROATE SODIUM
     Dosage: DOSE AND FREQUENCY WERE NOT REPORTED
  5. PIRACETAM [Concomitant]
     Active Substance: PIRACETAM
     Dosage: DOSE AND FREQUENCY WERE NOT REPORTED
  6. PREDNISONE [Concomitant]
     Active Substance: PREDNISONE
     Dosage: FREQUENCY WAS NOT REPORTED
  7. ACETAMINOPHEN [Concomitant]
     Active Substance: ACETAMINOPHEN
  8. ETORICOXIB [Concomitant]
     Active Substance: ETORICOXIB
  9. ACETAZOLAMIDE [Concomitant]
     Active Substance: ACETAZOLAMIDE
     Dosage: DOSE WAS NOT REPORTED
  10. SUPRADOL DUET [Concomitant]
     Indication: Pain
     Dosage: DOSE AND FREQUENCY WERE NOT REPORTED

REACTIONS (7)
  - Headache [Recovered/Resolved]
  - Brain oedema [Recovered/Resolved]
  - Discomfort [Recovered/Resolved]
  - Hemiparesis [Not Recovered/Not Resolved]
  - Burning sensation [Recovered/Resolved]
  - Gait disturbance [Not Recovered/Not Resolved]
  - Brain neoplasm [Recovered/Resolved]

NARRATIVE: CASE EVENT DATE: 20240401
